FAERS Safety Report 7983164-2 (Version None)
Quarter: 2011Q4

REPORT INFORMATION
  Report Type: 
  Country: None (occurrence: None)
  Receive Date: 20111215
  Receipt Date: 20111207
  Transmission Date: 20120403
  Serious: Yes (Hospitalization)
  Sender: FDA-Public Use
  Company Number: NL-MEDIMMUNE-MEDI-0014087

PATIENT
  Sex: Female
  Weight: 3.88 kg

DRUGS (6)
  1. PNEUMOCOCCAL VACCINE [Concomitant]
     Dates: start: 20111124, end: 20111124
  2. FUROSEMIDE SODIUM [Concomitant]
     Dates: start: 20110101
  3. SYNAGIS [Suspect]
     Route: 030
     Dates: start: 20111207, end: 20111207
  4. SYNAGIS [Suspect]
     Indication: HEART DISEASE CONGENITAL
     Route: 030
     Dates: start: 20111005, end: 20111102
  5. SPIRONOLACTONE [Concomitant]
     Route: 048
     Dates: start: 20110101
  6. DKTP-HIB VACCIN [Concomitant]
     Route: 058
     Dates: start: 20111124, end: 20111124

REACTIONS (3)
  - DYSPNOEA [None]
  - PYREXIA [None]
  - MYOCARDIAL OEDEMA [None]
